FAERS Safety Report 22369548 (Version 1)
Quarter: 2023Q2

REPORT INFORMATION
  Report Type: Spontaneous
  Country: US (occurrence: US)
  Receive Date: 20230526
  Receipt Date: 20230526
  Transmission Date: 20230722
  Serious: Yes (Hospitalization)
  Sender: FDA-Public Use
  Company Number: US-AUROBINDO-AUR-APL-2023-037914

PATIENT
  Age: 24 Year
  Sex: Male

DRUGS (2)
  1. ACETYLCYSTEINE [Suspect]
     Active Substance: ACETYLCYSTEINE
     Indication: Transaminases increased
     Dosage: UNK
     Route: 065
  2. BICTEGRAVIR\EMTRICITABINE\TENOFOVIR ALAFENAMIDE [Concomitant]
     Active Substance: BICTEGRAVIR\EMTRICITABINE\TENOFOVIR ALAFENAMIDE
     Indication: HIV infection
     Dosage: UNK
     Route: 065

REACTIONS (1)
  - Drug ineffective [Unknown]
